FAERS Safety Report 24573034 (Version 2)
Quarter: 2024Q4

REPORT INFORMATION
  Report Type: Spontaneous
  Country: BR (occurrence: BR)
  Receive Date: 20241101
  Receipt Date: 20241114
  Transmission Date: 20250114
  Serious: No
  Sender: ORGANON
  Company Number: BR-ORGANON-O2411BRA000021

PATIENT
  Age: 53 Year
  Sex: Male
  Weight: 104.7 kg

DRUGS (8)
  1. EZETIMIBE [Suspect]
     Active Substance: EZETIMIBE
     Dosage: UNK
  2. ENALAPRIL MALEATE [Concomitant]
     Active Substance: ENALAPRIL MALEATE
     Dosage: UNK
  3. ATORVASTATIN [Concomitant]
     Active Substance: ATORVASTATIN
     Indication: Coronary artery disease
     Dosage: 80 MILLIGRAM, QD, (STRENGTH: 80)
     Route: 048
     Dates: start: 20210621
  4. CLOPIDOGREL [Concomitant]
     Active Substance: CLOPIDOGREL BISULFATE
     Indication: Coronary artery disease
     Dosage: 75 MILLIGRAM, QD, (STRENGTH: 75)
     Route: 048
     Dates: start: 20210621
  5. CARVEDILOL [Concomitant]
     Active Substance: CARVEDILOL
     Indication: Coronary artery disease
     Dosage: 12.5 MILLIGRAM, BID, (STRENGTH: 6.25)
     Route: 048
     Dates: start: 20210621
  6. ASPIRIN [Concomitant]
     Active Substance: ASPIRIN
     Indication: Coronary artery disease
     Dosage: 100 MILLIGRAM, QD, (STRENGTH: 100)
     Route: 048
     Dates: start: 20210621
  7. PAROXETINE [Concomitant]
     Active Substance: PAROXETINE
     Indication: Obesity
     Dosage: 20 MILLIGRAM, QD, (STRENGTH: 20)
     Route: 048
     Dates: start: 202201
  8. PANTOPRAZOLE [Concomitant]
     Active Substance: PANTOPRAZOLE
     Indication: Gastritis
     Dosage: 20 MILLIGRAM, QD, (STRENGTH: 20)
     Route: 048
     Dates: start: 202201

REACTIONS (1)
  - Drug intolerance [Not Recovered/Not Resolved]

NARRATIVE: CASE EVENT DATE: 20240301
